FAERS Safety Report 9133621 (Version 3)
Quarter: 2013Q2

REPORT INFORMATION
  Report Type: Spontaneous
  Country: JP (occurrence: JP)
  Receive Date: 20130125
  Receipt Date: 20130613
  Transmission Date: 20140414
  Serious: Yes (Hospitalization)
  Sender: FDA-Public Use
  Company Number: JP-B.I. PHARMACEUTICALS,INC./RIDGEFIELD-2013-BI-01703NB

PATIENT
  Age: 73 Year
  Sex: Female
  Weight: 38 kg

DRUGS (11)
  1. TRAZENTA [Suspect]
     Indication: TYPE 2 DIABETES MELLITUS
     Dosage: 5 MG
     Route: 048
     Dates: start: 20121106, end: 20121225
  2. REZALTAS [Concomitant]
     Indication: HYPERTENSION
     Route: 048
     Dates: start: 20120821, end: 20121221
  3. DIART [Concomitant]
     Indication: RENAL FAILURE CHRONIC
     Dosage: 60 MG
     Route: 048
     Dates: start: 20121031, end: 20121206
  4. DIART [Concomitant]
     Dosage: 30 MG
     Route: 048
     Dates: start: 20121206, end: 20121218
  5. ALDACTONE A [Concomitant]
     Indication: RENAL FAILURE CHRONIC
     Dosage: 25 MG
     Route: 048
     Dates: start: 20121031, end: 20121220
  6. ARTIST [Concomitant]
     Indication: HYPERTENSION
     Dosage: 10 MG
     Route: 048
     Dates: start: 20121031
  7. ARICEPT [Concomitant]
     Indication: SENILE DEMENTIA
     Dosage: 5 MG
     Route: 048
     Dates: start: 20120110
  8. NESINA [Concomitant]
     Dosage: 6.25 MG
     Dates: end: 20121106
  9. BASEN OD [Concomitant]
     Dosage: 0.6 MG
     Dates: end: 20121106
  10. NOVORAPID [Concomitant]
     Indication: TYPE 2 DIABETES MELLITUS
     Dosage: 18 U
  11. LEVEMIR [Concomitant]
     Indication: TYPE 2 DIABETES MELLITUS
     Dosage: 4 U

REACTIONS (2)
  - Renal failure acute [Recovered/Resolved]
  - Dehydration [Recovered/Resolved]
